FAERS Safety Report 5661157-8 (Version None)
Quarter: 2008Q1

REPORT INFORMATION
  Report Type: 
  Country: None (occurrence: None)
  Receive Date: 20080305
  Receipt Date: 20080220
  Transmission Date: 20080703
  Serious: Yes (Hospitalization)
  Sender: FDA-Public Use
  Company Number: 2008004490

PATIENT
  Age: 72 Year
  Sex: Male

DRUGS (4)
  1. ACTIFED [Suspect]
     Indication: NASOPHARYNGITIS
     Dosage: 1 UNIT DOSE DAILY, ORAL
     Route: 048
     Dates: start: 20070101, end: 20080101
  2. ARCOXIA [Suspect]
     Indication: OSTEOARTHRITIS
     Dosage: 1 UNIT DOSE DAILY, ORAL
     Route: 048
     Dates: start: 20071230, end: 20080101
  3. ASPIRIN [Suspect]
     Indication: NASOPHARYNGITIS
     Dosage: 1 UNIT DOSE DAILY, ORAL
     Route: 048
     Dates: start: 20080101, end: 20080101
  4. ALUMINUM HYDROXIDE AND MAGNESIUM TRISILICATE [Concomitant]

REACTIONS (3)
  - ANAEMIA [None]
  - DUODENAL ULCER [None]
  - GASTRITIS EROSIVE [None]
